FAERS Safety Report 25229458 (Version 1)
Quarter: 2025Q2

REPORT INFORMATION
  Report Type: Spontaneous
  Country: GB (occurrence: GB)
  Receive Date: 20250423
  Receipt Date: 20250423
  Transmission Date: 20250716
  Serious: Yes (Life-Threatening, Hospitalization, Other)
  Sender: RANBAXY
  Company Number: GB-SUN PHARMACEUTICAL INDUSTRIES LTD-2025R1-504732

PATIENT
  Age: 29 Year
  Sex: Male

DRUGS (1)
  1. METRONIDAZOLE [Suspect]
     Active Substance: METRONIDAZOLE
     Indication: Giardiasis
     Route: 065

REACTIONS (3)
  - Strongyloidiasis [Recovering/Resolving]
  - Acute respiratory distress syndrome [Recovering/Resolving]
  - Astrocytoma [Unknown]
